FAERS Safety Report 4643724-3 (Version None)
Quarter: 2005Q2

REPORT INFORMATION
  Report Type: 
  Country: None (occurrence: None)
  Receive Date: 20050425
  Receipt Date: 20050418
  Transmission Date: 20051028
  Serious: Yes (Death)
  Sender: FDA-Public Use
  Company Number: US-BRISTOL-MYERS SQUIBB COMPANY-12938635

PATIENT
  Age: 61 Year
  Sex: Male

DRUGS (4)
  1. IFEX [Suspect]
  2. MESNEX [Suspect]
  3. PARAPLATIN [Suspect]
  4. VEPESID [Suspect]

REACTIONS (1)
  - DEATH [None]
